FAERS Safety Report 8060392-1 (Version None)
Quarter: 2012Q1

REPORT INFORMATION
  Report Type: 
  Country: None (occurrence: None)
  Receive Date: 20120120
  Receipt Date: 20120117
  Transmission Date: 20120608
  Serious: Yes (Hospitalization)
  Sender: FDA-Public Use
  Company Number: US-GLAXOSMITHKLINE-A0890325A

PATIENT
  Age: 44 Year
  Sex: Male
  Weight: 105 kg

DRUGS (10)
  1. CRESTOR [Concomitant]
  2. ZOCOR [Concomitant]
  3. MICARDIS [Concomitant]
  4. AVANDIA [Suspect]
     Indication: DIABETES MELLITUS
     Route: 048
     Dates: start: 20020101, end: 20070101
  5. AVANDAMET [Suspect]
     Indication: DIABETES MELLITUS
     Route: 048
     Dates: start: 20070206
  6. PLAVIX [Concomitant]
  7. PERMETHRIN [Concomitant]
  8. ASPIRIN [Concomitant]
  9. NITROSTAT [Concomitant]
  10. NEXIUM [Concomitant]

REACTIONS (2)
  - ANGINA UNSTABLE [None]
  - MYOCARDIAL INFARCTION [None]
